FAERS Safety Report 12098636 (Version 4)
Quarter: 2016Q1

REPORT INFORMATION
  Report Type: Spontaneous
  Country: NZ (occurrence: NZ)
  Receive Date: 20160222
  Receipt Date: 20160317
  Transmission Date: 20160526
  Serious: Yes (Hospitalization)
  Sender: FDA-Public Use
  Company Number: NZ-BEH-2016059018

PATIENT
  Age: 17 Year
  Sex: Male
  Weight: 87.8 kg

DRUGS (12)
  1. DHC [Concomitant]
     Active Substance: DIHYDROCODEINE BITARTRATE
     Indication: ANALGESIC THERAPY
     Dosage: START DATE: ??-JUN-2015
     Route: 048
  2. MORPHINE [Concomitant]
     Active Substance: MORPHINE
     Indication: HEADACHE
     Dosage: START DATE: ??-JUN-2015
     Route: 048
  3. PRIVIGEN [Suspect]
     Active Substance: HUMAN IMMUNOGLOBULIN G
     Route: 042
     Dates: start: 20160115
  4. GABAPENTIN. [Concomitant]
     Active Substance: GABAPENTIN
     Indication: HEADACHE
     Dosage: START DATE: ??-JUN-2015
     Route: 048
  5. DHC [Concomitant]
     Active Substance: DIHYDROCODEINE BITARTRATE
     Indication: HEADACHE
     Dosage: START DATE: ??-JUN-2015
     Route: 048
  6. PRIVIGEN [Suspect]
     Active Substance: HUMAN IMMUNOGLOBULIN G
     Route: 042
     Dates: start: 20160116
  7. GABAPENTIN. [Concomitant]
     Active Substance: GABAPENTIN
     Indication: HEADACHE
     Dosage: START DATE: ??-JUN-2015
     Route: 048
  8. PRIVIGEN [Suspect]
     Active Substance: HUMAN IMMUNOGLOBULIN G
     Indication: PERIPHERAL SENSORIMOTOR NEUROPATHY
     Route: 042
     Dates: start: 20160115
  9. PRIVIGEN [Suspect]
     Active Substance: HUMAN IMMUNOGLOBULIN G
     Route: 042
     Dates: start: 20160116
  10. PARACETAMOL [Concomitant]
     Active Substance: ACETAMINOPHEN
     Indication: ANALGESIC THERAPY
     Dosage: START DATE: ??-JUN-2015
     Route: 048
  11. PARACETAMOL [Concomitant]
     Active Substance: ACETAMINOPHEN
     Indication: HEADACHE
     Dosage: START DATE: ??-JUN-2015
     Route: 048
  12. MORPHINE [Concomitant]
     Active Substance: MORPHINE
     Indication: HEADACHE
     Dosage: START DATE: ??-JUN-2015
     Route: 048

REACTIONS (7)
  - Migraine [Recovered/Resolved]
  - Nausea [Recovered/Resolved]
  - Headache [Recovered/Resolved]
  - Vomiting [Recovered/Resolved]
  - Vision blurred [Recovered/Resolved]
  - Back pain [Recovered/Resolved]
  - Photophobia [Recovered/Resolved]

NARRATIVE: CASE EVENT DATE: 20160116
